FAERS Safety Report 6210715-0 (Version None)
Quarter: 2009Q2

REPORT INFORMATION
  Report Type: 
  Country: None (occurrence: None)
  Receive Date: 20090528
  Receipt Date: 20090528
  Transmission Date: 20091009
  Serious: Yes (Hospitalization)
  Sender: FDA-Public Use
  Company Number: None

PATIENT
  Sex: Male
  Weight: 91.6 kg

DRUGS (1)
  1. REMODULIN [Suspect]
     Indication: PULMONARY HYPERTENSION
     Dosage: 128NG/KG/MIN CONTINUOUS PRIOR TO ADMISSION

REACTIONS (1)
  - INJECTION SITE CELLULITIS [None]
